FAERS Safety Report 13891375 (Version 1)
Quarter: 2017Q3

REPORT INFORMATION
  Report Type: Spontaneous
  Country: US (occurrence: US)
  Receive Date: 20170822
  Receipt Date: 20170822
  Transmission Date: 20171127
  Serious: No
  Sender: FDA-Public Use
  Company Number: US-ELI_LILLY_AND_COMPANY-US201708007649

PATIENT
  Age: 59 Year
  Sex: Male

DRUGS (3)
  1. HUMALOG [Suspect]
     Active Substance: INSULIN LISPRO
     Dosage: LUNCH DOSE WAS ON SLIDING SCALE
     Route: 065
     Dates: start: 20170810
  2. HUMALOG [Suspect]
     Active Substance: INSULIN LISPRO
     Dosage: DINNER DOSE, 30 UNITS
     Route: 065
     Dates: start: 20170810
  3. HUMALOG [Suspect]
     Active Substance: INSULIN LISPRO
     Indication: PRODUCT USED FOR UNKNOWN INDICATION
     Dosage: 20 U, EACH MORNING
     Route: 065
     Dates: start: 20170810

REACTIONS (1)
  - Blood glucose increased [Unknown]

NARRATIVE: CASE EVENT DATE: 20170810
